FAERS Safety Report 7138203-8 (Version None)
Quarter: 2010Q4

REPORT INFORMATION
  Report Type: 
  Country: None (occurrence: None)
  Receive Date: 20101202
  Receipt Date: 20101202
  Transmission Date: 20110411
  Serious: Yes (Death)
  Sender: FDA-Public Use
  Company Number: None

PATIENT
  Age: 77 Year
  Sex: Male

DRUGS (9)
  1. REVLIMID [Suspect]
     Indication: MULTIPLE MYELOMA
     Dosage: 10 MG DAILY ORALLY
     Route: 048
     Dates: start: 20091124, end: 20100514
  2. MORPHINE SOLUTION [Concomitant]
  3. ARIXTRA [Concomitant]
  4. LASIX [Concomitant]
  5. DIGOXIN [Concomitant]
  6. LOVASTATIN [Concomitant]
  7. DEXEMETHASONE [Concomitant]
  8. BISOPROLOL [Concomitant]
  9. ISOSROBIDE MONONITRATE [Concomitant]

REACTIONS (10)
  - ALPHA GLOBULIN INCREASED [None]
  - ANGINA PECTORIS [None]
  - ASTHMA [None]
  - ATRIAL FIBRILLATION [None]
  - CARDIAC FAILURE CONGESTIVE [None]
  - CATARACT [None]
  - CEREBROVASCULAR ACCIDENT [None]
  - DISEASE PROGRESSION [None]
  - LIPID METABOLISM DISORDER [None]
  - NEPHROPATHY [None]
